FAERS Safety Report 5005702-4 (Version None)
Quarter: 2006Q2

REPORT INFORMATION
  Report Type: 
  Country: None (occurrence: None)
  Receive Date: 20060515
  Receipt Date: 20060501
  Transmission Date: 20061013
  Serious: Yes (Hospitalization)
  Sender: FDA-Public Use
  Company Number: HQWYE172404MAY06

PATIENT
  Age: 68 Year
  Sex: Female

DRUGS (9)
  1. RAPAMUNE [Suspect]
     Indication: PROPHYLAXIS AGAINST TRANSPLANT REJECTION
     Dosage: 2 MG 1 X PER 1 DAY
     Route: 048
     Dates: start: 20031022, end: 20040112
  2. CORTICOSTEROID NOS (CORTICOSTEROID NOS,) [Suspect]
     Indication: PROPHYLAXIS AGAINST TRANSPLANT REJECTION
     Dosage: 8 MG 1X PER 1 DAY
     Route: 048
     Dates: start: 20031020
  3. MYCOPHENOLATE MOFETIL [Concomitant]
  4. ZENAPAX [Concomitant]
  5. ZENAPAX [Concomitant]
  6. BACTRIM [Concomitant]
  7. ATENOLOL [Concomitant]
  8. SULFASALAZINE [Concomitant]
  9. GANCICLOVIR SODIUM [Concomitant]

REACTIONS (4)
  - COMPLICATIONS OF TRANSPLANTED KIDNEY [None]
  - CYSTITIS [None]
  - KIDNEY INFECTION [None]
  - RENAL CYST [None]
